FAERS Safety Report 8193568-3 (Version None)
Quarter: 2012Q1

REPORT INFORMATION
  Report Type: 
  Country: None (occurrence: None)
  Receive Date: 20120308
  Receipt Date: 20120228
  Transmission Date: 20120608
  Serious: Yes (Hospitalization)
  Sender: FDA-Public Use
  Company Number: FR-FRI-1000028893

PATIENT
  Sex: Female

DRUGS (7)
  1. MIRTAZAPINE [Concomitant]
  2. ESCITALOPRAM [Suspect]
     Dosage: 1 DF
     Route: 048
     Dates: start: 20111209, end: 20111211
  3. PRAXINOR [Concomitant]
  4. AMISULPRIDE [Concomitant]
  5. PANTOPRAZOLE [Concomitant]
  6. PRAZEPAM [Suspect]
     Dosage: 2 DF
     Route: 048
     Dates: start: 20111209, end: 20111211
  7. LEVOTHYROXINE SODIUM [Concomitant]

REACTIONS (4)
  - ACUTE RESPIRATORY DISTRESS SYNDROME [None]
  - SOMNOLENCE [None]
  - RESPIRATORY FAILURE [None]
  - OVERDOSE [None]
